FAERS Safety Report 6158544-0 (Version None)
Quarter: 2009Q2

REPORT INFORMATION
  Report Type: 
  Country: None (occurrence: None)
  Receive Date: 20090417
  Receipt Date: 20090408
  Transmission Date: 20091009
  Serious: Yes (Disabling)
  Sender: FDA-Public Use
  Company Number: AU-B.I. PHARMACEUTICALS,INC./RIDGEFIELD-2009-AU-00145AU

PATIENT
  Sex: Male

DRUGS (8)
  1. SIFROL [Suspect]
     Indication: PARKINSON'S DISEASE
     Dosage: 1.5MG
     Route: 048
     Dates: start: 20081201, end: 20090324
  2. ARTANE [Suspect]
     Indication: PARKINSON'S DISEASE
     Dosage: 8MG
     Route: 048
     Dates: start: 20080301
  3. ASPIRIN [Concomitant]
  4. ATACAND [Concomitant]
  5. CARDIZEM [Concomitant]
  6. LIPEX [Concomitant]
  7. PRESSIN [Concomitant]
  8. SYMBICORT [Concomitant]

REACTIONS (1)
  - ABNORMAL BEHAVIOUR [None]
